FAERS Safety Report 9256296 (Version 1)
Quarter: 2013Q2

REPORT INFORMATION
  Report Type: Spontaneous
  Country: US (occurrence: US)
  Receive Date: 20130425
  Receipt Date: 20130425
  Transmission Date: 20140414
  Serious: No
  Sender: FDA-Public Use
  Company Number: US-AMGEN-USASP2012080490

PATIENT
  Sex: 0

DRUGS (5)
  1. NEULASTA [Suspect]
     Indication: PRODUCT USED FOR UNKNOWN INDICATION
     Dosage: UNK
     Dates: start: 20121129
  2. CYCLOPHOSPHAMIDE [Concomitant]
     Dosage: UNK
     Dates: start: 20121128
  3. MITOZANTRONE [Concomitant]
     Dosage: UNK
     Dates: start: 20121128
  4. VINCRISTINE [Concomitant]
     Dosage: UNK
     Dates: start: 20121128
  5. PREDNISOLONE [Concomitant]
     Dosage: UNK
     Dates: start: 20121128

REACTIONS (1)
  - Neutropenia [Unknown]
